FAERS Safety Report 24303477 (Version 2)
Quarter: 2025Q2

REPORT INFORMATION
  Report Type: Spontaneous
  Country: MY (occurrence: MY)
  Receive Date: 20240910
  Receipt Date: 20250612
  Transmission Date: 20250716
  Serious: Yes (Hospitalization, Other)
  Sender: BAXTER
  Company Number: MY-BAXTER-2024BAX024050

PATIENT
  Age: 69 Year
  Sex: Female
  Weight: 52 kg

DRUGS (14)
  1. CYCLOPHOSPHAMIDE [Suspect]
     Active Substance: CYCLOPHOSPHAMIDE
     Indication: Diffuse large B-cell lymphoma
     Route: 042
     Dates: start: 20211204, end: 20220214
  2. CYCLOPHOSPHAMIDE [Suspect]
     Active Substance: CYCLOPHOSPHAMIDE
     Route: 042
     Dates: start: 20220225
  3. DOXORUBICIN [Suspect]
     Active Substance: DOXORUBICIN
     Indication: Diffuse large B-cell lymphoma
     Route: 042
     Dates: start: 20211204, end: 20220214
  4. DOXORUBICIN [Suspect]
     Active Substance: DOXORUBICIN
     Route: 042
     Dates: start: 20220225
  5. VINCRISTINE [Suspect]
     Active Substance: VINCRISTINE
     Indication: Diffuse large B-cell lymphoma
     Route: 042
     Dates: start: 20211204, end: 20220214
  6. VINCRISTINE [Suspect]
     Active Substance: VINCRISTINE
     Route: 042
     Dates: start: 20220225
  7. PREDNISOLONE [Suspect]
     Active Substance: PREDNISOLONE
     Indication: Diffuse large B-cell lymphoma
     Route: 048
     Dates: start: 20211204, end: 20220214
  8. PREDNISOLONE [Suspect]
     Active Substance: PREDNISOLONE
     Route: 048
     Dates: start: 20220225
  9. RITUXIMAB [Suspect]
     Active Substance: RITUXIMAB
     Indication: Diffuse large B-cell lymphoma
     Route: 042
     Dates: start: 20211204, end: 20220214
  10. RITUXIMAB [Suspect]
     Active Substance: RITUXIMAB
     Route: 042
     Dates: start: 20220225
  11. VALPROATE SODIUM [Concomitant]
     Active Substance: VALPROATE SODIUM
     Indication: Seizure
     Route: 048
     Dates: start: 20220225
  12. Cardiprin [Concomitant]
     Indication: Prophylaxis
     Route: 048
     Dates: start: 20211209, end: 20220216
  13. Maltofer [Concomitant]
     Indication: Anaemia
     Route: 048
     Dates: start: 20220120
  14. SLOW K [Concomitant]
     Active Substance: POTASSIUM CHLORIDE
     Indication: Hypokalaemia
     Route: 048
     Dates: start: 20220210

REACTIONS (6)
  - Traumatic intracranial haemorrhage [Recovered/Resolved]
  - COVID-19 [Recovered/Resolved]
  - Syncope [Unknown]
  - Neutropenia [Recovered/Resolved]
  - Orthostatic hypotension [Unknown]
  - Fall [Unknown]

NARRATIVE: CASE EVENT DATE: 20220210
